FAERS Safety Report 21266394 (Version 1)
Quarter: 2022Q3

REPORT INFORMATION
  Report Type: Spontaneous
  Country: US (occurrence: None)
  Receive Date: 20220829
  Receipt Date: 20220829
  Transmission Date: 20221027
  Serious: Yes (Other)
  Sender: FDA-Public Use
  Company Number: None

PATIENT
  Sex: 0

DRUGS (2)
  1. AMITRIPTYLINE [Suspect]
     Active Substance: AMITRIPTYLINE
  2. TOPAMAX [Suspect]
     Active Substance: TOPIRAMATE

REACTIONS (3)
  - Somnolence [None]
  - Weight increased [None]
  - Drug ineffective [None]
